FAERS Safety Report 16789906 (Version 1)
Quarter: 2019Q3

REPORT INFORMATION
  Report Type: Spontaneous
  Country: US (occurrence: US)
  Receive Date: 20190719
  Receipt Date: 20190719
  Transmission Date: 20191005
  Serious: Yes (Hospitalization)
  Sender: FDA-Public Use
  Company Number: None

PATIENT
  Age: 36 Year
  Sex: Female
  Weight: 60.78 kg

DRUGS (1)
  1. PALBOCICLIB [Suspect]
     Active Substance: PALBOCICLIB
     Indication: BREAST CANCER
     Route: 048
     Dates: start: 20171102

REACTIONS (7)
  - Headache [None]
  - Chills [None]
  - Nausea [None]
  - Pyrexia [None]
  - Vomiting [None]
  - Neutropenia [None]
  - Influenza [None]

NARRATIVE: CASE EVENT DATE: 20190208
